FAERS Safety Report 9621291 (Version 1)
Quarter: 2013Q4

REPORT INFORMATION
  Report Type: Spontaneous
  Country: US (occurrence: None)
  Receive Date: 20131011
  Receipt Date: 20131011
  Transmission Date: 20140711
  Serious: No
  Sender: FDA-Public Use
  Company Number: None

PATIENT
  Age: 44 Year
  Sex: Female

DRUGS (1)
  1. TECFIDERA 120MG BIOGEN [Suspect]
     Indication: MULTIPLE SCLEROSIS
     Dosage: 1 CAP BID ORAL
     Route: 048
     Dates: start: 20131004, end: 20131005

REACTIONS (1)
  - Cystitis [None]
